FAERS Safety Report 8977556 (Version 1)
Quarter: 2012Q4

REPORT INFORMATION
  Report Type: 
  Country: JP (occurrence: US)
  Receive Date: 20121219
  Receipt Date: 20121219
  Transmission Date: 20130627
  Serious: Yes (Hospitalization, Other)
  Sender: FDA-Public Use
  Company Number: US-JNJFOC-20101206012

PATIENT
  Sex: Male

DRUGS (7)
  1. LEVAQUIN [Suspect]
     Indication: ASTHMA
     Route: 048
     Dates: start: 200807, end: 200807
  2. LEVAQUIN [Suspect]
     Indication: RESPIRATORY TRACT INFECTION
     Route: 048
     Dates: start: 200807, end: 200807
  3. STEROIDS NOS [Suspect]
     Indication: ASTHMA
     Route: 065
  4. PREDNISONE [Suspect]
     Indication: COUGH
     Route: 048
  5. ZOCOR [Concomitant]
     Indication: BLOOD CHOLESTEROL INCREASED
     Route: 065
  6. NIACIN [Concomitant]
     Indication: ROUTINE HEALTH MAINTENANCE
     Route: 065
  7. ALL OTHER THERAPEUTIC PRODUCTS [Concomitant]
     Indication: HYPERTENSION
     Route: 065

REACTIONS (10)
  - Tendon rupture [Unknown]
  - Tendon rupture [Unknown]
  - Tendon rupture [Unknown]
  - Hernia [Unknown]
  - Bursitis [Unknown]
  - Neck pain [Unknown]
  - Back pain [Unknown]
  - Hypokinesia [Unknown]
  - Gait disturbance [Unknown]
  - Tendon disorder [Unknown]
